FAERS Safety Report 5610244-9 (Version None)
Quarter: 2008Q1

REPORT INFORMATION
  Report Type: 
  Country: None (occurrence: None)
  Receive Date: 20080131
  Receipt Date: 20080121
  Transmission Date: 20080703
  Serious: Yes (Life-Threatening)
  Sender: FDA-Public Use
  Company Number: NL-ABBOTT-07P-114-0378739-00

PATIENT
  Sex: Male
  Weight: 1 kg

DRUGS (3)
  1. KALETRA [Suspect]
     Indication: PROPHYLAXIS AGAINST HIV INFECTION
     Route: 065
     Dates: start: 20061210
  2. ZIDOVUDINE [Suspect]
     Indication: PROPHYLAXIS AGAINST HIV INFECTION
     Route: 065
     Dates: start: 20061210, end: 20061214
  3. LAMIVUDINE [Suspect]
     Indication: PROPHYLAXIS AGAINST HIV INFECTION
     Route: 065
     Dates: start: 20061210, end: 20061214

REACTIONS (2)
  - ATRIOVENTRICULAR BLOCK [None]
  - CONGESTIVE CARDIOMYOPATHY [None]
